FAERS Safety Report 9687316 (Version 3)
Quarter: 2013Q4

REPORT INFORMATION
  Report Type: Report from Study
  Country: AU (occurrence: AU)
  Receive Date: 20131114
  Receipt Date: 20131215
  Transmission Date: 20140711
  Serious: Yes (Other)
  Sender: FDA-Public Use
  Company Number: AU-ROCHE-1300775

PATIENT
  Sex: Male

DRUGS (8)
  1. ACTEMRA [Suspect]
     Indication: RHEUMATOID ARTHRITIS
     Dosage: ONGOING
     Route: 042
     Dates: start: 20111007
  2. CRESTOR [Concomitant]
     Dosage: NOCTE
     Route: 048
  3. LEXAPRO [Concomitant]
     Dosage: MANE
     Route: 048
  4. LIPIDIL [Concomitant]
     Dosage: NOCTE
     Route: 048
  5. MEGAFOL [Concomitant]
     Dosage: EXCEPT MONDAYS; WITH FOOD
     Route: 065
  6. METHOTREXATE [Concomitant]
     Dosage: ON MONDAYS
     Route: 048
  7. PLAVIX [Concomitant]
     Dosage: MANE
     Route: 048
  8. SOMAC (AUSTRALIA) [Concomitant]
     Route: 065

REACTIONS (1)
  - Sinus arrest [Unknown]
